FAERS Safety Report 5082593-7 (Version None)
Quarter: 2006Q3

REPORT INFORMATION
  Report Type: 
  Country: None (occurrence: None)
  Receive Date: 20060814
  Receipt Date: 20060804
  Transmission Date: 20061208
  Serious: Yes (Hospitalization)
  Sender: FDA-Public Use
  Company Number: 2006087822

PATIENT
  Age: 81 Year
  Sex: Female

DRUGS (1)
  1. ROGAINE [Suspect]
     Dosage: TOPICAL
     Route: 061
     Dates: start: 20030101, end: 20060501

REACTIONS (10)
  - ARRHYTHMIA [None]
  - ASTHENIA [None]
  - CARDIAC DISORDER [None]
  - DIZZINESS [None]
  - FATIGUE [None]
  - FEELING ABNORMAL [None]
  - GAIT DISTURBANCE [None]
  - HYPERTENSION [None]
  - PULMONARY THROMBOSIS [None]
  - RASH [None]
